FAERS Safety Report 9385903 (Version 1)
Quarter: 2013Q3

REPORT INFORMATION
  Report Type: Spontaneous
  Country: ES (occurrence: ES)
  Receive Date: 20130705
  Receipt Date: 20130705
  Transmission Date: 20140515
  Serious: Yes (Life-Threatening, Hospitalization, Other)
  Sender: FDA-Public Use
  Company Number: ES-BRISTOL-MYERS SQUIBB COMPANY-19032382

PATIENT
  Age: 51 Year
  Sex: Male

DRUGS (2)
  1. SPRYCEL [Suspect]
     Indication: CHRONIC MYELOID LEUKAEMIA
     Dates: start: 201104
  2. NILOTINIB [Concomitant]
     Indication: CHRONIC MYELOID LEUKAEMIA

REACTIONS (9)
  - Grand mal convulsion [Unknown]
  - Pericardial effusion [Unknown]
  - Atelectasis [Unknown]
  - Respiratory failure [Unknown]
  - Hyponatraemia [Unknown]
  - Haemothorax [Unknown]
  - Pleural effusion [Recovering/Resolving]
  - Ascites [Unknown]
  - Hyperglycaemia [Unknown]
